FAERS Safety Report 18115444 (Version 1)
Quarter: 2020Q3

REPORT INFORMATION
  Report Type: Spontaneous
  Country: GB (occurrence: GB)
  Receive Date: 20200805
  Receipt Date: 20200805
  Transmission Date: 20201103
  Serious: Yes (Other)
  Sender: FDA-Public Use
  Company Number: GB-FRESENIUS KABI-FK202008002

PATIENT
  Age: 45 Month
  Sex: Female

DRUGS (3)
  1. CISPLATIN. [Suspect]
     Active Substance: CISPLATIN
     Indication: HEPATOBLASTOMA
     Dosage: 6 MONTHS
     Route: 065
  2. DOXORUBICIN [Suspect]
     Active Substance: DOXORUBICIN
     Indication: HEPATOBLASTOMA
     Route: 065
  3. CARBOPLATIN (MANUFACTURER UNKNOWN) [Suspect]
     Active Substance: CARBOPLATIN
     Indication: HEPATOBLASTOMA
     Dosage: 6 MONTHS
     Route: 065

REACTIONS (1)
  - Acute myeloid leukaemia refractory [Unknown]
